FAERS Safety Report 16233672 (Version 2)
Quarter: 2019Q2

REPORT INFORMATION
  Report Type: Spontaneous
  Country: IT (occurrence: IT)
  Receive Date: 20190424
  Receipt Date: 20190523
  Transmission Date: 20190711
  Serious: Yes (Hospitalization)
  Sender: FDA-Public Use
  Company Number: IT-JNJFOC-20190430106

PATIENT
  Age: 69 Year
  Sex: Female

DRUGS (1)
  1. PALIPERIDONE. [Suspect]
     Active Substance: PALIPERIDONE
     Indication: PRODUCT ADMINISTRATION ERROR
     Route: 048
     Dates: start: 20190409, end: 20190409

REACTIONS (2)
  - Electrocardiogram QT prolonged [Recovering/Resolving]
  - Medication error [Unknown]

NARRATIVE: CASE EVENT DATE: 20190409
